FAERS Safety Report 22085867 (Version 1)
Quarter: 2023Q1

REPORT INFORMATION
  Report Type: Spontaneous
  Country: None (occurrence: ES)
  Receive Date: 20230310
  Receipt Date: 20230310
  Transmission Date: 20230417
  Serious: Yes (Other)
  Sender: FDA-Public Use
  Company Number: ES-Stallergenes SAS-2138926

PATIENT
  Age: 9 Year
  Sex: Female

DRUGS (1)
  1. ORALAIR [Suspect]
     Active Substance: ANTHOXANTHUM ODORATUM POLLEN\DACTYLIS GLOMERATA POLLEN\LOLIUM PERENNE POLLEN\PHLEUM PRATENSE POLLEN\
     Indication: Asthma
     Route: 060

REACTIONS (4)
  - Respiratory distress [Recovered/Resolved]
  - Hypoventilation [Recovered/Resolved]
  - Sensation of foreign body [Recovered/Resolved]
  - Palatal oedema [Recovered/Resolved]

NARRATIVE: CASE EVENT DATE: 20230221
